FAERS Safety Report 6520520-3 (Version None)
Quarter: 2009Q4

REPORT INFORMATION
  Report Type: 
  Country: None (occurrence: None)
  Receive Date: 20091229
  Receipt Date: 20091222
  Transmission Date: 20100525
  Serious: Yes (Death, Hospitalization)
  Sender: FDA-Public Use
  Company Number: B0619436A

PATIENT
  Sex: Male

DRUGS (11)
  1. ARIXTRA [Suspect]
     Indication: PULMONARY EMBOLISM
     Dosage: 7.5MG PER DAY
     Route: 058
     Dates: start: 20081204, end: 20081216
  2. AUGMENTIN '125' [Suspect]
     Indication: INFECTION
     Dosage: 1G THREE TIMES PER DAY
     Route: 048
     Dates: start: 20081214, end: 20081217
  3. KARDEGIC [Suspect]
     Indication: MYOCARDIAL INFARCTION
     Dosage: 75MG PER DAY
     Route: 048
     Dates: end: 20081216
  4. SOLUPRED [Suspect]
     Dosage: 20MG PER DAY
     Route: 048
     Dates: end: 20081216
  5. DIFFU K [Concomitant]
     Dosage: 1CAP PER DAY
     Route: 048
     Dates: end: 20081216
  6. LANTUS [Concomitant]
     Dosage: 36IU PER DAY
     Route: 058
     Dates: end: 20081216
  7. LASILIX FAIBLE [Concomitant]
     Indication: MYOCARDIAL INFARCTION
     Dosage: 20MG PER DAY
     Route: 048
     Dates: end: 20081216
  8. HEXAMIDINE ISETHIONATE [Concomitant]
     Dosage: 1DROP TWICE PER DAY
     Route: 047
     Dates: end: 20081216
  9. TAHOR [Concomitant]
     Dosage: 20MG PER DAY
     Route: 048
     Dates: end: 20081216
  10. EZETROL [Concomitant]
     Dosage: 10MG PER DAY
     Route: 048
     Dates: end: 20081216
  11. NEXIUM [Concomitant]
     Dosage: 20MG PER DAY
     Route: 048
     Dates: end: 20081216

REACTIONS (3)
  - BRAIN STEM HAEMORRHAGE [None]
  - COMA [None]
  - CONFUSIONAL STATE [None]
